FAERS Safety Report 4431548-1 (Version None)
Quarter: 2004Q3

REPORT INFORMATION
  Report Type: 
  Country: None (occurrence: None)
  Receive Date: 20040824
  Receipt Date: 20040814
  Transmission Date: 20050211
  Serious: Yes (Hospitalization, Other)
  Sender: FDA-Public Use
  Company Number: LB-MERCK-0408USA01329

PATIENT
  Age: 14 Year
  Sex: Female

DRUGS (5)
  1. [THERAPY UNSPECIFIED] [Concomitant]
     Route: 055
  2. AUGMENTIN '125' [Concomitant]
     Route: 065
  3. CORTICOSTEROIDS (UNSPECIFIED) [Concomitant]
     Route: 055
  4. CORTICOSTEROIDS (UNSPECIFIED) [Concomitant]
     Route: 048
  5. SINGULAIR [Suspect]
     Indication: ASTHMA
     Route: 048
     Dates: start: 20030101, end: 20040814

REACTIONS (2)
  - EOSINOPHILIA [None]
  - LUNG INFILTRATION [None]
